FAERS Safety Report 4729936-9 (Version None)
Quarter: 2005Q3

REPORT INFORMATION
  Report Type: 
  Country: None (occurrence: None)
  Receive Date: 20050728
  Receipt Date: 20050719
  Transmission Date: 20060218
  Serious: Yes (Other)
  Sender: FDA-Public Use
  Company Number: 200512833BCC

PATIENT
  Age: 79 Year
  Sex: Female
  Weight: 57.6068 kg

DRUGS (12)
  1. MILK OF MAGNESIA TAB [Suspect]
     Indication: CONSTIPATION
     Dosage: SEE IMAGE
     Route: 048
     Dates: start: 20050601
  2. MILK OF MAGNESIA TAB [Suspect]
     Indication: CONSTIPATION
     Dosage: SEE IMAGE
     Route: 048
     Dates: start: 20050710
  3. NORPACE [Concomitant]
  4. WELLBUTRIN [Concomitant]
  5. OXYBUTYNIN [Concomitant]
  6. SYNTHROID [Concomitant]
  7. CARDIZEM [Concomitant]
  8. ATIVAN [Concomitant]
  9. LITHIUM [Concomitant]
  10. REMERON [Concomitant]
  11. MULTIVITAMIN SUPPLEMENT [Concomitant]
  12. CALCIUM SUPPLEMENT [Concomitant]

REACTIONS (2)
  - HAEMATOCHEZIA [None]
  - HAEMORRHOIDS [None]
